FAERS Safety Report 12422791 (Version 1)
Quarter: 2016Q2

REPORT INFORMATION
  Report Type: Spontaneous
  Country: IT (occurrence: IT)
  Receive Date: 20160601
  Receipt Date: 20160601
  Transmission Date: 20160815
  Serious: Yes (Hospitalization)
  Sender: FDA-Public Use
  Company Number: IT-ASTRAZENECA-2016SE56161

PATIENT
  Age: 31923 Day
  Sex: Male

DRUGS (12)
  1. BRILIQUE [Suspect]
     Active Substance: TICAGRELOR
     Route: 048
  2. CARDIOASPIRIN (ASA) [Interacting]
     Active Substance: ASPIRIN
     Route: 048
  3. LASIX [Concomitant]
     Active Substance: FUROSEMIDE
     Dosage: 25.0MG UNKNOWN
     Route: 048
  4. TAVOR (LORAZEPAM) [Concomitant]
     Active Substance: LORAZEPAM
     Dosage: 1.0MG UNKNOWN
     Route: 048
  5. KANRENOL (POTASSIUM CANRENOATE) [Concomitant]
     Dosage: 100.0MG UNKNOWN
     Route: 048
  6. FELISON (FLURAZEPAM) [Concomitant]
     Dosage: 15.0MG UNKNOWN
     Route: 048
  7. CONGESCOR (BISOPROLOL) [Concomitant]
     Route: 048
  8. ZYPREXA [Concomitant]
     Active Substance: OLANZAPINE
     Dosage: 2,5 MG COATING TABLETS
     Route: 048
  9. PAROXETINA ACTAVIS (PAROXETINE) [Concomitant]
     Dosage: 20.0MG UNKNOWN
     Route: 048
  10. FOSTER (BECLOMETHASONE + FORMOTEROL) [Concomitant]
     Dosage: 100 MCG/6 MCG PER ACTUATION PRESSURISED INHALATION SOLUTION
     Route: 055
  11. LANSOX (LANSOPRAZOLE) [Concomitant]
     Active Substance: LANSOPRAZOLE
     Dosage: 15.0MG UNKNOWN
     Route: 048
  12. TOTALIP (ATORVASTATIN) [Concomitant]
     Dosage: 10.0MG UNKNOWN
     Route: 048

REACTIONS (7)
  - Injury [Unknown]
  - Auricular haematoma [Unknown]
  - Drug interaction [Unknown]
  - Wound [Unknown]
  - Traumatic haemorrhage [Unknown]
  - Subarachnoid haemorrhage [Unknown]
  - Contusion [Unknown]

NARRATIVE: CASE EVENT DATE: 20160319
